FAERS Safety Report 6377472-9 (Version None)
Quarter: 2009Q3

REPORT INFORMATION
  Report Type: 
  Country: None (occurrence: None)
  Receive Date: 20090923
  Receipt Date: 20090923
  Transmission Date: 20100115
  Serious: Yes (Life-Threatening, Hospitalization)
  Sender: FDA-Public Use
  Company Number: None

PATIENT
  Age: 41 Year
  Sex: Male
  Weight: 86.2 kg

DRUGS (13)
  1. GLIPIZIDE XL 2.5MG [Suspect]
     Indication: TYPE 2 DIABETES MELLITUS
     Dosage: 2.5MG PO QAM UNKNOWN
     Route: 048
  2. RENAGEL [Concomitant]
  3. SENSIPAR [Concomitant]
  4. AVAPRO [Concomitant]
  5. LISINOPRIL [Concomitant]
  6. NIFEDIPINE [Concomitant]
  7. DIOVAN [Concomitant]
  8. LIPITOR [Concomitant]
  9. NEPHROCAPS [Concomitant]
  10. LABETALOL HCL [Concomitant]
  11. CLONIDINE [Concomitant]
  12. TYLENOL (CAPLET) [Concomitant]
  13. PROCRIT [Concomitant]

REACTIONS (2)
  - HYPOGLYCAEMIA [None]
  - UNRESPONSIVE TO STIMULI [None]
